FAERS Safety Report 19169727 (Version 1)
Quarter: 2021Q2

REPORT INFORMATION
  Report Type: Spontaneous
  Country: US (occurrence: US)
  Receive Date: 20210422
  Receipt Date: 20210422
  Transmission Date: 20210717
  Serious: No
  Sender: FDA-Public Use
  Company Number: US-ASTELLAS-2021US000241

PATIENT
  Age: 6 Decade
  Sex: Male

DRUGS (8)
  1. LEXISCAN [Suspect]
     Active Substance: REGADENOSON
     Dosage: 0.4 MG/5 ML (5CC) (0.1 MG), UNKNOWN FREQ.
     Route: 042
     Dates: start: 20201230, end: 20201230
  2. LEXISCAN [Suspect]
     Active Substance: REGADENOSON
     Indication: SCAN MYOCARDIAL PERFUSION
     Dosage: 0.4 MG/5 ML (1CC) (0.01 MG), UNKNOWN FREQ.
     Route: 042
     Dates: start: 20201230, end: 20201230
  3. LEXISCAN [Suspect]
     Active Substance: REGADENOSON
     Indication: SCAN MYOCARDIAL PERFUSION
     Dosage: 0.4 MG/5 ML (1CC) (0.01 MG), UNKNOWN FREQ.
     Route: 042
     Dates: start: 20201230, end: 20201230
  4. LEXISCAN [Suspect]
     Active Substance: REGADENOSON
     Dosage: 0.4 MG/5 ML (5CC) (0.1 MG), UNKNOWN FREQ.
     Route: 042
     Dates: start: 20201230, end: 20201230
  5. LEXISCAN [Suspect]
     Active Substance: REGADENOSON
     Dosage: 0.4 MG/5 ML (5CC) (0.1 MG), UNKNOWN FREQ.
     Route: 042
     Dates: start: 20201230, end: 20201230
  6. LEXISCAN [Suspect]
     Active Substance: REGADENOSON
     Indication: SCAN MYOCARDIAL PERFUSION
     Dosage: 0.4 MG/5 ML (1CC) (0.01 MG), UNKNOWN FREQ.
     Route: 042
     Dates: start: 20201230, end: 20201230
  7. LEXISCAN [Suspect]
     Active Substance: REGADENOSON
     Indication: SCAN MYOCARDIAL PERFUSION
     Dosage: 0.4 MG/5 ML (1CC) (0.01 MG), UNKNOWN FREQ.
     Route: 042
     Dates: start: 20201230, end: 20201230
  8. LEXISCAN [Suspect]
     Active Substance: REGADENOSON
     Dosage: 0.4 MG/5 ML (5CC) (0.1 MG), UNKNOWN FREQ.
     Route: 042
     Dates: start: 20201230, end: 20201230

REACTIONS (1)
  - Injection site extravasation [Recovered/Resolved]

NARRATIVE: CASE EVENT DATE: 20201230
